FAERS Safety Report 19351355 (Version 2)
Quarter: 2022Q3

REPORT INFORMATION
  Report Type: Other
  Country: US (occurrence: None)
  Receive Date: 20210531
  Receipt Date: 20220803
  Transmission Date: 20221026
  Serious: Yes (Other)
  Sender: FDA-Public Use
  Company Number: US-ROCHE-2837438

PATIENT
  Age: 60 Year
  Sex: Female

DRUGS (4)
  1. AVASTIN [Suspect]
     Active Substance: BEVACIZUMAB
     Indication: Ovarian cancer
     Dosage: TOTAL 1-6 CHEMO CYCLE ON DAY 1, 51, 72, 107, 128, 149 RESPECTIVELY AND POST TREATMENT MAINTENANCE GI
     Route: 042
  2. CARBOPLATIN [Suspect]
     Active Substance: CARBOPLATIN
     Indication: Ovarian cancer
     Dosage: AREA UNDER THE CURVE (AUC) 4
     Route: 065
  3. TAXOL [Suspect]
     Active Substance: PACLITAXEL
     Indication: Ovarian cancer
     Route: 065
  4. PEGFILGRASTIM [Suspect]
     Active Substance: PEGFILGRASTIM
     Indication: Ovarian cancer
     Route: 065

REACTIONS (13)
  - Pneumonia bacterial [Unknown]
  - Klebsiella infection [Unknown]
  - Urinary tract infection [Unknown]
  - Urinary incontinence [Unknown]
  - Fatigue [Unknown]
  - Neuropathy peripheral [Unknown]
  - Headache [Unknown]
  - Dyspnoea exertional [Unknown]
  - Anxiety [Unknown]
  - Abdominal pain [Unknown]
  - Bone pain [Unknown]
  - Abdominal discomfort [Unknown]
  - Oral herpes [Unknown]
